FAERS Safety Report 7890446 (Version 3)
Quarter: 2013Q4

REPORT INFORMATION
  Report Type: Spontaneous
  Country: IL (occurrence: PL)
  Receive Date: 20110408
  Receipt Date: 20131227
  Transmission Date: 20140711
  Serious: Yes (Life-Threatening, Other)
  Sender: FDA-Public Use
  Company Number: IL-BIOGENIDEC-2011BI012683

PATIENT
  Age: 29 Year
  Sex: Male
  Weight: 74 kg

DRUGS (3)
  1. AVONEX [Suspect]
     Indication: MULTIPLE SCLEROSIS
     Route: 030
     Dates: start: 20090311
  2. LAQUINIMOD/PLACEBO [Concomitant]
  3. IBUFROFEN [Concomitant]
     Indication: INFLUENZA LIKE ILLNESS
     Route: 048
     Dates: start: 20090311, end: 20110303

REACTIONS (1)
  - Multiple sclerosis relapse [Unknown]
